FAERS Safety Report 25355474 (Version 1)
Quarter: 2025Q2

REPORT INFORMATION
  Report Type: Report from Study
  Country: US (occurrence: US)
  Receive Date: 20250525
  Receipt Date: 20250525
  Transmission Date: 20250717
  Serious: Yes (Other)
  Sender: JOHNSON AND JOHNSON
  Company Number: US-JNJFOC-20250519958

PATIENT

DRUGS (2)
  1. TRABECTEDIN [Suspect]
     Active Substance: TRABECTEDIN
     Indication: Soft tissue sarcoma
     Dosage: 24 HOUR INFUSION
     Route: 042
  2. OLAPARIB [Suspect]
     Active Substance: OLAPARIB
     Indication: Soft tissue sarcoma
     Dosage: BID CONTINUOUSLY
     Route: 048

REACTIONS (15)
  - Leukopenia [Unknown]
  - Myelosuppression [Unknown]
  - Neutropenia [Unknown]
  - Thrombocytopenia [Unknown]
  - Anaemia [Unknown]
  - Fatigue [Unknown]
  - Nausea [Unknown]
  - Alanine aminotransferase increased [Unknown]
  - Aspartate aminotransferase increased [Unknown]
  - Constipation [Unknown]
  - Blood creatinine increased [Unknown]
  - Vomiting [Unknown]
  - Headache [Unknown]
  - Dyspnoea [Unknown]
  - Myalgia [Unknown]
